FAERS Safety Report 4336145-4 (Version None)
Quarter: 2004Q2

REPORT INFORMATION
  Report Type: 
  Country: None (occurrence: None)
  Receive Date: 20040407
  Receipt Date: 20040324
  Transmission Date: 20050107
  Serious: Yes (Other)
  Sender: FDA-Public Use
  Company Number: 2004-UK-00294UK

PATIENT
  Age: 69 Year
  Sex: Male

DRUGS (3)
  1. SPIRIVA [Suspect]
     Dosage: 18 MCG (18MCG), IH
     Route: 055
     Dates: start: 20040203, end: 20040221
  2. SALBUTAMOL (SALBUTAMOL) [Concomitant]
  3. IPRTROPIUM [Concomitant]

REACTIONS (2)
  - ARTHRALGIA [None]
  - PSORIASIS [None]
